FAERS Safety Report 16277174 (Version 3)
Quarter: 2024Q1

REPORT INFORMATION
  Report Type: Spontaneous
  Country: US (occurrence: US)
  Receive Date: 20190506
  Receipt Date: 20240320
  Transmission Date: 20240410
  Serious: Yes (Other)
  Sender: FDA-Public Use
  Company Number: US-PFIZER INC-2019190013

PATIENT
  Age: 72 Year
  Sex: Female
  Weight: 57.506 kg

DRUGS (3)
  1. IBRANCE [Suspect]
     Active Substance: PALBOCICLIB
     Indication: Breast cancer metastatic
     Dosage: 100 MG
  2. IBRANCE [Suspect]
     Active Substance: PALBOCICLIB
     Dosage: TAKE 1 CAPSULE DAILY ON DAYS 1-21 WITH FOOD + WATER. SAME TIME EVERY DAY
     Route: 048
  3. FULVESTRANT [Concomitant]
     Active Substance: FULVESTRANT
     Indication: Breast cancer metastatic

REACTIONS (13)
  - Neutropenia [Unknown]
  - Myelosuppression [Unknown]
  - Hypothyroidism [Unknown]
  - Hypoaesthesia oral [Unknown]
  - Peripheral coldness [Unknown]
  - Anaemia [Unknown]
  - Decreased appetite [Unknown]
  - Weight decreased [Unknown]
  - Hypertension [Unknown]
  - Osteoarthritis [Unknown]
  - Varicose vein [Unknown]
  - Dizziness [Unknown]
  - Anxiety [Unknown]
